FAERS Safety Report 4490552-8 (Version None)
Quarter: 2004Q4

REPORT INFORMATION
  Report Type: 
  Country: None (occurrence: None)
  Receive Date: 20041028
  Receipt Date: 20041015
  Transmission Date: 20050328
  Serious: Yes (Death, Hospitalization)
  Sender: FDA-Public Use
  Company Number: 2004075145

PATIENT
  Age: 79 Year
  Sex: Male
  Weight: 70 kg

DRUGS (4)
  1. ZOLOFT [Suspect]
     Indication: DEPRESSION
     Dosage: 50 MG (50 MG, 1 IN 1 D), ORAL
     Route: 048
     Dates: start: 20040901, end: 20040920
  2. BENSERAZIDE (BENZERAZIDE) [Concomitant]
  3. MADOPAR (BENSERAZIDE HYDROCHLORIDE, LEVODOPA) [Concomitant]
  4. ACETYLSALICYLIC ACID SRT [Concomitant]

REACTIONS (4)
  - BILIRUBIN CONJUGATED INCREASED [None]
  - BLOOD BILIRUBIN INCREASED [None]
  - CEREBRAL HAEMORRHAGE [None]
  - FALL [None]
